FAERS Safety Report 12435117 (Version 3)
Quarter: 2018Q2

REPORT INFORMATION
  Report Type: Spontaneous
  Country: US (occurrence: US)
  Receive Date: 20160603
  Receipt Date: 20180625
  Transmission Date: 20180711
  Serious: No
  Sender: FDA-Public Use
  Company Number: US-ROCHE-1745525

PATIENT
  Sex: Female

DRUGS (2)
  1. KLONOPIN [Suspect]
     Active Substance: CLONAZEPAM
     Indication: POST-TRAUMATIC STRESS DISORDER
     Dosage: 1/2 TABLET IN THE MORNING AND EVENING AS NEEDED?START DATE: 33 YEAR AGO
     Route: 065
  2. NEXIUM [Concomitant]
     Active Substance: ESOMEPRAZOLE MAGNESIUM

REACTIONS (15)
  - Product quality issue [Unknown]
  - Throat irritation [Unknown]
  - Dyspepsia [Unknown]
  - Drug ineffective [Unknown]
  - Nausea [Unknown]
  - Ill-defined disorder [Not Recovered/Not Resolved]
  - Expired product administered [Unknown]
  - Product odour abnormal [Unknown]
  - Dysgeusia [Unknown]
  - Breast cancer [Recovered/Resolved]
  - Back disorder [Not Recovered/Not Resolved]
  - Sinusitis [Unknown]
  - Tooth extraction [Unknown]
  - Malaise [Unknown]
  - Vomiting [Unknown]
